FAERS Safety Report 11141895 (Version 1)
Quarter: 2015Q2

REPORT INFORMATION
  Report Type: Spontaneous
  Country: US (occurrence: US)
  Receive Date: 20150527
  Receipt Date: 20150527
  Transmission Date: 20150821
  Serious: Yes (Other)
  Sender: FDA-Public Use
  Company Number: US-ASTRAZENECA-2013SE87262

PATIENT
  Age: 629 Month
  Sex: Female

DRUGS (55)
  1. LOSARTAN [Concomitant]
     Active Substance: LOSARTAN
     Route: 048
     Dates: start: 20110118
  2. NORVASC [Concomitant]
     Active Substance: AMLODIPINE BESYLATE
     Route: 048
     Dates: start: 20020501
  3. CRESTOR [Concomitant]
     Active Substance: ROSUVASTATIN CALCIUM
     Route: 048
     Dates: start: 20110118
  4. ULTRAM [Concomitant]
     Active Substance: TRAMADOL HYDROCHLORIDE
     Route: 048
     Dates: start: 20120118
  5. ACETAMINOPHENE/CODEINE [Concomitant]
     Dosage: 300-30MG, EVERY SIX HOURS
     Route: 048
     Dates: start: 19990210
  6. FOLIC ACID. [Concomitant]
     Active Substance: FOLIC ACID
     Route: 048
     Dates: start: 20090829
  7. METHOTREXATE [Concomitant]
     Active Substance: METHOTREXATE
     Dosage: 2.5 MG, THREE TABLETS ONCE A WEEK
     Route: 048
     Dates: start: 20090829
  8. TORSEMIDE. [Concomitant]
     Active Substance: TORSEMIDE
     Route: 048
     Dates: start: 20110118
  9. VERAPAMIL [Concomitant]
     Active Substance: VERAPAMIL HYDROCHLORIDE
     Route: 048
     Dates: start: 19990112
  10. IBUPROFEN. [Concomitant]
     Active Substance: IBUPROFEN
     Route: 048
     Dates: start: 19990210
  11. ETODOLAC. [Concomitant]
     Active Substance: ETODOLAC
     Route: 048
     Dates: start: 19990401
  12. RANITIDINE [Concomitant]
     Active Substance: RANITIDINE\RANITIDINE HYDROCHLORIDE
     Route: 048
     Dates: start: 20090318
  13. LIPITOR [Concomitant]
     Active Substance: ATORVASTATIN CALCIUM
     Route: 048
     Dates: start: 20090815
  14. CYCLOBENZAPRINE/ FLEXERIL [Concomitant]
     Route: 048
     Dates: start: 20090815
  15. BYETTA [Suspect]
     Active Substance: EXENATIDE
     Indication: TYPE 2 DIABETES MELLITUS
     Route: 065
     Dates: start: 20100223
  16. DRISDOL [Concomitant]
     Active Substance: ERGOCALCIFEROL
     Route: 048
     Dates: start: 20110118
  17. COZAAR [Concomitant]
     Active Substance: LOSARTAN POTASSIUM
     Route: 048
     Dates: start: 20120118
  18. DEMADEX [Concomitant]
     Active Substance: TORSEMIDE
     Route: 048
     Dates: start: 20120118
  19. ROBAXIN [Concomitant]
     Active Substance: METHOCARBAMOL
     Route: 048
     Dates: start: 20120118
  20. FUROSEMIDE. [Concomitant]
     Active Substance: FUROSEMIDE
     Route: 048
     Dates: start: 19990112
  21. CELEBREX [Concomitant]
     Active Substance: CELECOXIB
     Route: 048
     Dates: start: 20091205
  22. K-DUR [Concomitant]
     Active Substance: POTASSIUM CHLORIDE
     Route: 048
     Dates: start: 19990112
  23. FLUOXETINE [Concomitant]
     Active Substance: FLUOXETINE\FLUOXETINE HYDROCHLORIDE
     Route: 048
     Dates: start: 20020501
  24. AMITRIPTYLINE [Concomitant]
     Active Substance: AMITRIPTYLINE
     Route: 048
     Dates: start: 20090222
  25. AVELOX [Concomitant]
     Active Substance: MOXIFLOXACIN HYDROCHLORIDE
     Dates: start: 20090129
  26. MELOXICAM. [Concomitant]
     Active Substance: MELOXICAM
     Dates: start: 20110616
  27. TRIMOX [Concomitant]
     Active Substance: AMOXICILLIN
     Route: 048
     Dates: start: 19990319
  28. DICLOXACILLIN [Concomitant]
     Active Substance: DICLOXACILLIN
     Route: 048
     Dates: start: 20010614
  29. CEPHALEXIN. [Concomitant]
     Active Substance: CEPHALEXIN
     Route: 048
     Dates: start: 20030612
  30. TRAMADOL HCL [Concomitant]
     Active Substance: TRAMADOL HYDROCHLORIDE
     Route: 048
     Dates: start: 20090213
  31. ESTRADIOL. [Concomitant]
     Active Substance: ESTRADIOL
     Route: 048
     Dates: start: 20090319
  32. LISINOPRIL. [Concomitant]
     Active Substance: LISINOPRIL
     Route: 048
     Dates: start: 20090815
  33. FLUCONAZOLE. [Concomitant]
     Active Substance: FLUCONAZOLE
     Dates: start: 20090531
  34. BYETTA [Suspect]
     Active Substance: EXENATIDE
     Indication: TYPE 2 DIABETES MELLITUS
     Route: 065
     Dates: start: 20100517
  35. CIPRO [Concomitant]
     Active Substance: CIPROFLOXACIN HYDROCHLORIDE
     Route: 048
     Dates: start: 20110118
  36. MOTRIN [Concomitant]
     Active Substance: IBUPROFEN
     Route: 048
     Dates: start: 20120118
  37. NABUMETONE. [Concomitant]
     Active Substance: NABUMETONE
     Route: 048
     Dates: start: 20100325
  38. PROZAC [Concomitant]
     Active Substance: FLUOXETINE HYDROCHLORIDE
     Route: 048
     Dates: start: 20010328
  39. METHOCARBAMOL. [Concomitant]
     Active Substance: METHOCARBAMOL
     Dates: start: 20110513
  40. BYETTA [Suspect]
     Active Substance: EXENATIDE
     Indication: TYPE 2 DIABETES MELLITUS
     Dosage: UNK
     Route: 065
     Dates: start: 201001, end: 201006
  41. FEXOFENADINE [Concomitant]
     Active Substance: FEXOFENADINE\FEXOFENADINE HYDROCHLORIDE
     Route: 048
     Dates: start: 20110118
  42. FLONASE [Concomitant]
     Active Substance: FLUTICASONE PROPIONATE
  43. AMBIEN [Concomitant]
     Active Substance: ZOLPIDEM TARTRATE
     Route: 048
     Dates: start: 20120118
  44. NEURONTIN [Concomitant]
     Active Substance: GABAPENTIN
     Route: 048
     Dates: start: 20120118
  45. ALLEGRA [Concomitant]
     Active Substance: FEXOFENADINE HYDROCHLORIDE
     Route: 048
     Dates: start: 19990307
  46. ZESTORETIC/ PRINZIDE [Concomitant]
     Dosage: 20-12.5 MG, TAKE TWO TABLETS DAILY
     Route: 048
     Dates: start: 20011018
  47. CARISOPRODOL. [Concomitant]
     Active Substance: CARISOPRODOL
     Route: 048
     Dates: start: 20010711
  48. ZOLPIDEM [Concomitant]
     Active Substance: ZOLPIDEM\ZOLPIDEM TARTRATE
     Route: 048
     Dates: start: 20091024
  49. LANTUS SOLOSTAR [Concomitant]
     Active Substance: INSULIN GLARGINE
     Dates: start: 20100211
  50. METFORMIN [Concomitant]
     Active Substance: METFORMIN HYDROCHLORIDE
     Route: 048
     Dates: start: 20090815
  51. PROPACET [Concomitant]
     Active Substance: ACETAMINOPHEN\PROPOXYPHENE NAPSYLATE
     Dosage: 100-650 TAB, EVERY 4 TO 6 HOURS
     Route: 048
     Dates: start: 19990406
  52. SINGULAIR [Concomitant]
     Active Substance: MONTELUKAST SODIUM
     Route: 048
     Dates: start: 20030428
  53. GLIMEPIRIDE. [Concomitant]
     Active Substance: GLIMEPIRIDE
     Route: 048
     Dates: start: 20091205
  54. FLUTICASONE [Concomitant]
     Active Substance: FLUTICASONE\FLUTICASONE PROPIONATE
     Dates: start: 20100129
  55. VEETIDS [Concomitant]
     Active Substance: PENICILLIN V POTASSIUM
     Route: 048
     Dates: start: 20001106

REACTIONS (2)
  - Goitre [Unknown]
  - Papillary thyroid cancer [Unknown]

NARRATIVE: CASE EVENT DATE: 201111
